FAERS Safety Report 8378030-7 (Version None)
Quarter: 2012Q2

REPORT INFORMATION
  Report Type: 
  Country: None (occurrence: None)
  Receive Date: 20120522
  Receipt Date: 20120509
  Transmission Date: 20120825
  Serious: Yes (Hospitalization)
  Sender: FDA-Public Use
  Company Number: GB-MYLANLABS-2012S1009922

PATIENT
  Age: 72 Year
  Sex: Male

DRUGS (1)
  1. CIMETIDINE [Suspect]
     Route: 065

REACTIONS (1)
  - JAUNDICE [None]
